FAERS Safety Report 7867434-4 (Version None)
Quarter: 2011Q4

REPORT INFORMATION
  Report Type: 
  Country: None (occurrence: None)
  Receive Date: 20111028
  Receipt Date: 20111026
  Transmission Date: 20120403
  Serious: Yes (Life-Threatening)
  Sender: FDA-Public Use
  Company Number: DE-MERCK-1110DEU00079

PATIENT
  Sex: Male

DRUGS (3)
  1. ANIDULAFUNGIN [Suspect]
     Route: 042
     Dates: start: 20111001, end: 20111021
  2. ANIDULAFUNGIN [Suspect]
     Indication: CANDIDA SEPSIS
     Route: 042
     Dates: start: 20111019, end: 20111001
  3. CANSIDAS [Suspect]
     Indication: CANDIDA SEPSIS
     Route: 042
     Dates: start: 20110101, end: 20111001

REACTIONS (2)
  - HEPATIC ENZYME INCREASED [None]
  - ACUTE HEPATIC FAILURE [None]
